FAERS Safety Report 8877385 (Version 2)
Quarter: 2012Q4

REPORT INFORMATION
  Report Type: 
  Country: US (occurrence: None)
  Receive Date: 20121026
  Receipt Date: 20121123
  Transmission Date: 20130627
  Serious: Yes (Hospitalization)
  Sender: FDA-Public Use
  Company Number: DKLU1085421

PATIENT
  Age: 49 Year
  Sex: Female

DRUGS (7)
  1. SABRIL [Suspect]
     Indication: COMPLEX PARTIAL SEIZURES
     Route: 048
     Dates: start: 20121011
  2. PHENOBARBITAL [Concomitant]
  3. NEURONTIN [Concomitant]
  4. VIMPAT [Concomitant]
  5. ONFI (CLOBAZAM) (CLOBAZAM) [Concomitant]
  6. TOPAMAX (TOPIRAMATE) [Concomitant]
  7. KEPPRA (LEVETIRACETAM) [Concomitant]

REACTIONS (1)
  - Medical induction of coma [None]
